FAERS Safety Report 8381420 (Version 4)
Quarter: 2014Q1

REPORT INFORMATION
  Report Type: Report from Study
  Country: CH (occurrence: CH)
  Receive Date: 20120131
  Receipt Date: 20140205
  Transmission Date: 20141002
  Serious: Yes (Death, Hospitalization)
  Sender: FDA-Public Use
  Company Number: PHHY2012CH007610

PATIENT
  Age: 48 Year
  Sex: Male

DRUGS (13)
  1. GILENYA [Suspect]
     Indication: MULTIPLE SCLEROSIS
     Route: 048
     Dates: start: 20110427
  2. LEPONEX [Suspect]
  3. SIRDALUD [Suspect]
     Indication: MUSCLE SPASMS
  4. REMERON [Concomitant]
  5. SURMONTIL [Concomitant]
  6. TEMESTA [Concomitant]
  7. PANTOZOL [Concomitant]
  8. BUSCOPAN [Concomitant]
  9. MOTILIUM [Concomitant]
  10. MOVICOL [Concomitant]
  11. MAGNESIOCARD [Concomitant]
  12. SORTIS [Concomitant]
     Indication: HYPERCHOLESTEROLAEMIA
  13. INDERAL [Concomitant]

REACTIONS (6)
  - Completed suicide [Fatal]
  - Depression [Unknown]
  - Fear [Unknown]
  - Feeling of despair [Unknown]
  - Pain [Unknown]
  - Multiple sclerosis relapse [Recovering/Resolving]
